FAERS Safety Report 9825350 (Version 1)
Quarter: 2014Q1

REPORT INFORMATION
  Report Type: Spontaneous
  Country: US (occurrence: None)
  Receive Date: 20140115
  Receipt Date: 20140115
  Transmission Date: 20141002
  Serious: Yes (Other)
  Sender: FDA-Public Use
  Company Number: None

PATIENT
  Age: 71 Year
  Sex: Female
  Weight: 95.26 kg

DRUGS (4)
  1. ECONAZOLE [Suspect]
     Indication: TINEA PEDIS
     Dates: start: 20131220, end: 20131221
  2. SYNTHROID [Concomitant]
  3. INSULIN [Concomitant]
  4. VITAMIN D [Concomitant]

REACTIONS (2)
  - Hypersensitivity [None]
  - Fatigue [None]
